FAERS Safety Report 7980268-5 (Version None)
Quarter: 2011Q4

REPORT INFORMATION
  Report Type: 
  Country: None (occurrence: None)
  Receive Date: 20111214
  Receipt Date: 20111210
  Transmission Date: 20120403
  Serious: Yes (Hospitalization)
  Sender: FDA-Public Use
  Company Number: US-CEPHALON-2011006203

PATIENT
  Sex: Male

DRUGS (2)
  1. RITUXIMAB [Concomitant]
     Indication: B-CELL LYMPHOMA
     Dates: start: 20100101
  2. TREANDA [Suspect]
     Indication: B-CELL LYMPHOMA
     Route: 042
     Dates: start: 20100101, end: 20100101

REACTIONS (3)
  - HYPOXIA [None]
  - HYPOTENSION [None]
  - OEDEMA PERIPHERAL [None]
